FAERS Safety Report 4679039-7 (Version None)
Quarter: 2005Q2

REPORT INFORMATION
  Report Type: 
  Country: None (occurrence: None)
  Receive Date: 20050527
  Receipt Date: 20050519
  Transmission Date: 20051028
  Serious: Yes (Other)
  Sender: FDA-Public Use
  Company Number: 2005054821

PATIENT
  Age: 56 Year
  Sex: Male
  Weight: 98.8842 kg

DRUGS (10)
  1. CELEBREX [Suspect]
     Indication: ARTHRITIS
     Dosage: 200 MG (200 MG, 1 IN 1 D)
  2. CELEBREX [Suspect]
     Indication: PAIN IN EXTREMITY
     Dosage: 200 MG (200 MG, 1 IN 1 D)
  3. PLAVIX [Concomitant]
  4. ALTACE [Concomitant]
  5. ACETYLSALICYLIC ACID ENTERIC COATED (ACETYLSALICYLIC ACID) [Concomitant]
  6. NIASPAN [Concomitant]
  7. LIPITOR [Concomitant]
  8. VITAMIN C (VITAMIN C) [Concomitant]
  9. CLARITIN [Concomitant]
  10. ADVAIR (FLUTICASONE PROPIONATE, SALMETEROL XINAFOATE) [Concomitant]

REACTIONS (3)
  - CORONARY ARTERY OCCLUSION [None]
  - MYOCARDIAL INFARCTION [None]
  - WEIGHT DECREASED [None]
